FAERS Safety Report 15205880 (Version 2)
Quarter: 2020Q4

REPORT INFORMATION
  Report Type: Spontaneous
  Country: US (occurrence: US)
  Receive Date: 20180727
  Receipt Date: 20201208
  Transmission Date: 20210113
  Serious: Yes (Disabling)
  Sender: FDA-Public Use
  Company Number: US-TEVA-2018-US-932662

PATIENT
  Age: 44 Year
  Sex: Female

DRUGS (10)
  1. PAMELOR [Concomitant]
     Active Substance: NORTRIPTYLINE HYDROCHLORIDE
     Dates: start: 2017
  2. PERJETA [Concomitant]
     Active Substance: PERTUZUMAB
     Dates: start: 20160527
  3. NERLYNX [Concomitant]
     Active Substance: NERATINIB
     Dates: start: 201606
  4. PARAPLATIN [Concomitant]
     Active Substance: CARBOPLATIN
     Indication: BREAST CANCER FEMALE
     Dosage: DOSAGE: UNKNOWN; NUMBER OF CYCLES: 02.
     Dates: start: 20160318, end: 20160408
  5. DOCETAXEL. [Suspect]
     Active Substance: DOCETAXEL
     Indication: BREAST CANCER FEMALE
     Dosage: DOSAGE: 134MG; NUMBER OF CYCLES: 03; EVERY THREE WEEKS
     Route: 065
     Dates: start: 20160318, end: 20160527
  6. PERJETA [Concomitant]
     Active Substance: PERTUZUMAB
     Indication: BREAST CANCER FEMALE
     Dosage: NUMBER OF CYCLES: 2; EVERY THREE WEEKS
     Dates: start: 20160318, end: 20160408
  7. NEOSAR [Concomitant]
     Active Substance: CYCLOPHOSPHAMIDE
     Indication: BREAST CANCER FEMALE
     Dosage: DOSAGE: UNKNOWN; NUMBER OF CYCLES: 03; EVERY THREE WEEKS
     Dates: start: 20160219
  8. ADRIAMYCIN [Concomitant]
     Active Substance: DOXORUBICIN HYDROCHLORIDE
     Indication: BREAST CANCER FEMALE
     Dosage: DOSAGE: UNKNOWN; NUMBER OF CYCLES:03; EVERY THREE WEEKS
     Dates: start: 20160219
  9. HERCEPTIN [Concomitant]
     Active Substance: TRASTUZUMAB
     Indication: BREAST CANCER FEMALE
     Dosage: NUMBER OF CYCLES: 02; EVERY THREE WEEKS
     Dates: start: 20160318, end: 20160408
  10. HERCEPTIN [Concomitant]
     Active Substance: TRASTUZUMAB
     Dosage: DOSAGE: UNKNOWN;
     Dates: start: 20160527

REACTIONS (4)
  - Hair colour changes [Not Recovered/Not Resolved]
  - Alopecia areata [Not Recovered/Not Resolved]
  - Madarosis [Not Recovered/Not Resolved]
  - Hair texture abnormal [Not Recovered/Not Resolved]

NARRATIVE: CASE EVENT DATE: 2016
